FAERS Safety Report 9883782 (Version 2)
Quarter: 2014Q3

REPORT INFORMATION
  Report Type: Spontaneous
  Country: US (occurrence: US)
  Receive Date: 20140210
  Receipt Date: 20140801
  Transmission Date: 20150326
  Serious: Yes (Hospitalization, Other)
  Sender: FDA-Public Use
  Company Number: US-009507513-1402USA003507

PATIENT
  Sex: Female

DRUGS (1)
  1. NUVARING [Suspect]
     Active Substance: ETHINYL ESTRADIOL\ETONOGESTREL
     Indication: DYSMENORRHOEA
     Dosage: UNK
     Route: 067
     Dates: start: 20120810, end: 20131013

REACTIONS (4)
  - Intracranial venous sinus thrombosis [Unknown]
  - Cerebral haemorrhage [Unknown]
  - Embolism arterial [Unknown]
  - Thrombosis [Unknown]

NARRATIVE: CASE EVENT DATE: 201310
